FAERS Safety Report 4707503-0 (Version None)
Quarter: 2005Q3

REPORT INFORMATION
  Report Type: 
  Country: None (occurrence: None)
  Receive Date: 20050701
  Receipt Date: 20050615
  Transmission Date: 20060218
  Serious: Yes (Other)
  Sender: FDA-Public Use
  Company Number: 2005BH000330

PATIENT
  Age: 65 Year
  Sex: Female

DRUGS (12)
  1. SODIUM CHLORIDE 0.9% IN PLASTIC CONTAINER [Suspect]
     Dosage: 10 ML; AS NEEDED; IV
     Route: 042
     Dates: start: 20050524, end: 20050524
  2. SOMATOSTATIN [Concomitant]
  3. ACETAMINOPHEN [Concomitant]
  4. SPIRONOLACTONE [Concomitant]
  5. PROPRANOLOL [Concomitant]
  6. IMDUR [Concomitant]
  7. OXASCAND [Concomitant]
  8. FUROSEMIDE [Concomitant]
  9. OCTOSTIM [Concomitant]
  10. KALCIPOS [Concomitant]
  11. ZOPICLONE [Concomitant]
  12. PANTOPRAZOLE [Concomitant]

REACTIONS (8)
  - ABNORMAL SENSATION IN EYE [None]
  - BLOOD PRESSURE INCREASED [None]
  - CYANOSIS [None]
  - DYSPNOEA [None]
  - FEELING ABNORMAL [None]
  - HEART RATE INCREASED [None]
  - OBSTRUCTIVE AIRWAYS DISORDER [None]
  - OXYGEN SATURATION DECREASED [None]
